FAERS Safety Report 7386926-8 (Version None)
Quarter: 2011Q1

REPORT INFORMATION
  Report Type: 
  Country: None (occurrence: None)
  Receive Date: 20110331
  Receipt Date: 20110322
  Transmission Date: 20110831
  Serious: Yes (Hospitalization)
  Sender: FDA-Public Use
  Company Number: AU-ASTRAZENECA-2011SE16489

PATIENT
  Age: 32 Year
  Sex: Female

DRUGS (4)
  1. FENTANYL [Suspect]
     Route: 065
  2. SUCCINYLCHOLINE CHLORIDE [Suspect]
     Route: 042
     Dates: start: 20110120, end: 20110120
  3. PROPOFOL [Suspect]
     Route: 042
  4. METARAMINOL TARTRATE [Suspect]
     Route: 065

REACTIONS (6)
  - OXYGEN SATURATION DECREASED [None]
  - EPIGLOTTIC OEDEMA [None]
  - TRYPTASE DECREASED [None]
  - RASH [None]
  - HYPOTENSION [None]
  - ANAPHYLACTIC REACTION [None]
